FAERS Safety Report 7986389-5 (Version None)
Quarter: 2011Q4

REPORT INFORMATION
  Report Type: 
  Country: None (occurrence: None)
  Receive Date: 20111216
  Receipt Date: 20110531
  Transmission Date: 20120403
  Serious: No
  Sender: FDA-Public Use
  Company Number: US-GLAXOSMITHKLINE-A0929678A

PATIENT
  Age: 62 Year
  Sex: Male

DRUGS (2)
  1. COREG CR [Suspect]
     Indication: CARDIOMYOPATHY
     Dosage: 10MG UNKNOWN
     Route: 048
     Dates: start: 20110517
  2. NO CONCURRENT MEDICATION [Concomitant]

REACTIONS (1)
  - INSOMNIA [None]
